FAERS Safety Report 20645748 (Version 6)
Quarter: 2022Q3

REPORT INFORMATION
  Report Type: Spontaneous
  Country: JP (occurrence: JP)
  Receive Date: 20220328
  Receipt Date: 20220728
  Transmission Date: 20221027
  Serious: Yes (Life-Threatening, Hospitalization)
  Sender: FDA-Public Use
  Company Number: JP-ABBVIE-22K-087-4334577-00

PATIENT
  Age: 90 Year
  Sex: Female
  Weight: 57 kg

DRUGS (8)
  1. GLECAPREVIR\PIBRENTASVIR [Suspect]
     Active Substance: GLECAPREVIR\PIBRENTASVIR
     Indication: Chronic hepatitis C
     Route: 048
     Dates: start: 20220225, end: 20220324
  2. TELMISARTAN [Concomitant]
     Active Substance: TELMISARTAN
     Indication: Hypertension
     Route: 048
     Dates: end: 20220323
  3. AMLODIPINE BESYLATE [Concomitant]
     Active Substance: AMLODIPINE BESYLATE
     Indication: Hypertension
     Route: 048
     Dates: end: 20220323
  4. AZOSEMIDE [Concomitant]
     Active Substance: AZOSEMIDE
     Indication: Hypertension
     Route: 048
     Dates: end: 20220323
  5. FEBUXOSTAT [Concomitant]
     Active Substance: FEBUXOSTAT
     Indication: Product used for unknown indication
     Route: 048
  6. CALCIUM POLYSTYRENE SULFONATE [Concomitant]
     Active Substance: CALCIUM POLYSTYRENE SULFONATE
     Indication: Product used for unknown indication
     Route: 048
  7. SENNOSIDES [Concomitant]
     Active Substance: SENNOSIDES
     Indication: Product used for unknown indication
     Route: 048
  8. SODIUM BICARBONATE [Concomitant]
     Active Substance: SODIUM BICARBONATE
     Indication: Product used for unknown indication
     Route: 048

REACTIONS (6)
  - Cerebral haemorrhage [Not Recovered/Not Resolved]
  - Loss of consciousness [Not Recovered/Not Resolved]
  - Urinary tract infection [Recovering/Resolving]
  - Ascites [Recovering/Resolving]
  - Melaena [Recovering/Resolving]
  - Pneumonia aspiration [Recovering/Resolving]

NARRATIVE: CASE EVENT DATE: 20220101
